FAERS Safety Report 9796006 (Version 2)
Quarter: 2014Q1

REPORT INFORMATION
  Report Type: Spontaneous
  Country: US (occurrence: US)
  Receive Date: 20140103
  Receipt Date: 20140103
  Transmission Date: 20141002
  Serious: No
  Sender: FDA-Public Use
  Company Number: US-GILEAD-2010-0034063

PATIENT
  Age: 11 Year
  Sex: Female

DRUGS (6)
  1. CAYSTON [Suspect]
     Indication: PRIMARY CILIARY DYSKINESIA
     Dates: start: 20101122
  2. ALBUTEROL [Concomitant]
  3. XOPENEX [Concomitant]
  4. ADVAIR [Concomitant]
     Dates: start: 20071207
  5. PROVENTIL [Concomitant]
  6. TOBI [Concomitant]
     Dates: start: 20101014

REACTIONS (1)
  - Dry skin [Unknown]
